FAERS Safety Report 5297689-4 (Version None)
Quarter: 2007Q1

REPORT INFORMATION
  Report Type: 
  Country: None (occurrence: None)
  Receive Date: 20070201
  Receipt Date: 20061028
  Transmission Date: 20070707
  Serious: No
  Sender: FDA-Public Use
  Company Number: 2006PV024136

PATIENT
  Age: 33 Year
  Sex: Female
  Weight: 115.2136 kg

DRUGS (4)
  1. BYETTA [Suspect]
     Indication: DIABETES MELLITUS NON-INSULIN-DEPENDENT
     Dosage: 5 MCG;BID;SC
     Route: 058
     Dates: start: 20061011
  2. GLUCOPHAGE [Concomitant]
  3. ENBREL [Concomitant]
  4. NEXIUM [Concomitant]

REACTIONS (5)
  - ABDOMINAL DISTENSION [None]
  - DIARRHOEA [None]
  - FATIGUE [None]
  - GASTROENTERITIS VIRAL [None]
  - NAUSEA [None]
